FAERS Safety Report 9829750 (Version 2)
Quarter: 2014Q1

REPORT INFORMATION
  Report Type: Spontaneous
  Country: US (occurrence: US)
  Receive Date: 20140120
  Receipt Date: 20140331
  Transmission Date: 20141002
  Serious: Yes (Death, Other)
  Sender: FDA-Public Use
  Company Number: US-AMGEN-USASP2014002675

PATIENT
  Age: 84 Year
  Sex: Female
  Weight: 53.52 kg

DRUGS (1)
  1. PROLIA [Suspect]
     Indication: OSTEOPOROSIS POSTMENOPAUSAL
     Dosage: UNK
     Route: 065

REACTIONS (4)
  - Cardiac death [Fatal]
  - Arrhythmia [Fatal]
  - Aortic stenosis [Unknown]
  - Asthma [Unknown]
